FAERS Safety Report 16279074 (Version 4)
Quarter: 2019Q4

REPORT INFORMATION
  Report Type: Spontaneous
  Country: US (occurrence: US)
  Receive Date: 20190506
  Receipt Date: 20191223
  Transmission Date: 20200122
  Serious: Yes (Other)
  Sender: FDA-Public Use
  Company Number: US-TAKEDA-2019TUS027584

PATIENT

DRUGS (54)
  1. AVANDAMET [Concomitant]
     Active Substance: METFORMIN HYDROCHLORIDE\ROSIGLITAZONE MALEATE
  2. CYMBALTA [Concomitant]
     Active Substance: DULOXETINE HYDROCHLORIDE
  3. NAPRELAN [Concomitant]
     Active Substance: NAPROXEN SODIUM
  4. PIOGLITAZONE HCL [Concomitant]
     Active Substance: PIOGLITAZONE
  5. OXYCODONE [Concomitant]
     Active Substance: OXYCODONE
  6. OMEPRAZOLE. [Suspect]
     Active Substance: OMEPRAZOLE
     Dosage: 20 MILLIGRAM
     Route: 048
     Dates: start: 2016, end: 2018
  7. AZITHROMYCIN ANHYDROUS. [Concomitant]
     Active Substance: AZITHROMYCIN ANHYDROUS
  8. HYOSCYAMINE. [Concomitant]
     Active Substance: HYOSCYAMINE
  9. CLARITHROMYCIN. [Concomitant]
     Active Substance: CLARITHROMYCIN
  10. OLOPATADINE HCL [Concomitant]
     Active Substance: OLOPATADINE HYDROCHLORIDE
  11. CELECOXIB. [Concomitant]
     Active Substance: CELECOXIB
     Indication: PAIN
     Dosage: UNK
     Dates: start: 2017
  12. OMEPRAZOLE. [Suspect]
     Active Substance: OMEPRAZOLE
     Indication: GASTROOESOPHAGEAL REFLUX DISEASE
     Dosage: 20 MILLIGRAM
     Route: 048
     Dates: start: 2010, end: 2011
  13. CIPROFLOXACIN. [Concomitant]
     Active Substance: CIPROFLOXACIN
     Dosage: UNK
  14. ALPRAZOLAM. [Concomitant]
     Active Substance: ALPRAZOLAM
  15. CELEBREX [Concomitant]
     Active Substance: CELECOXIB
  16. METRONIDAZOLE. [Concomitant]
     Active Substance: METRONIDAZOLE
  17. NAPROXEN. [Concomitant]
     Active Substance: NAPROXEN
  18. MONTELUKAST [Concomitant]
     Active Substance: MONTELUKAST SODIUM
  19. SIMVASTATIN. [Concomitant]
     Active Substance: SIMVASTATIN
  20. SERTRALINE HCL [Concomitant]
     Active Substance: SERTRALINE HYDROCHLORIDE
  21. TANZEUM [Concomitant]
     Active Substance: ALBIGLUTIDE
  22. FARXIGA [Concomitant]
     Active Substance: DAPAGLIFLOZIN PROPANEDIOL
  23. PREVACID [Suspect]
     Active Substance: LANSOPRAZOLE
     Indication: PRODUCT USED FOR UNKNOWN INDICATION
     Dosage: UNK
     Route: 048
  24. DIOVAN [Concomitant]
     Active Substance: VALSARTAN
  25. PREDNISONE. [Concomitant]
     Active Substance: PREDNISONE
  26. CODEINE SULFATE. [Concomitant]
     Active Substance: CODEINE SULFATE
  27. ONDANSETRON [Concomitant]
     Active Substance: ONDANSETRON
  28. TAMSULOSIN [Concomitant]
     Active Substance: TAMSULOSIN
     Dosage: UNK
     Dates: start: 2018
  29. METHYLPREDNISOLONE. [Concomitant]
     Active Substance: METHYLPREDNISOLONE
  30. FLUCONAZOLE. [Concomitant]
     Active Substance: FLUCONAZOLE
     Dosage: UNK
     Dates: start: 2018
  31. DOXYCYCLINE HYCLATE. [Concomitant]
     Active Substance: DOXYCYCLINE HYCLATE
  32. GLIPIZIDE. [Concomitant]
     Active Substance: GLIPIZIDE
     Dosage: UNK
     Dates: start: 2012, end: 2018
  33. LEVOFLOXACIN. [Concomitant]
     Active Substance: LEVOFLOXACIN
     Dosage: UNK
     Dates: start: 2013
  34. ESTRADIOL. [Concomitant]
     Active Substance: ESTRADIOL
  35. AMOXICILLIN. [Concomitant]
     Active Substance: AMOXICILLIN
  36. NOVOLOG [Concomitant]
     Active Substance: INSULIN ASPART
  37. ALBUTEROL                          /00139501/ [Concomitant]
     Active Substance: ALBUTEROL
  38. METOCLOPRAMIDE. [Concomitant]
     Active Substance: METOCLOPRAMIDE
  39. TRAMADOL HCL [Concomitant]
     Active Substance: TRAMADOL HYDROCHLORIDE
  40. DIAZEPAM. [Concomitant]
     Active Substance: DIAZEPAM
     Dosage: UNK
     Dates: start: 2016, end: 2018
  41. TRAZODONE [Concomitant]
     Active Substance: TRAZODONE HYDROCHLORIDE
     Dosage: UNK
     Dates: start: 2016, end: 2018
  42. IBUPROFEN. [Concomitant]
     Active Substance: IBUPROFEN
     Indication: ANTIINFLAMMATORY THERAPY
     Dosage: UNK
     Dates: start: 2013, end: 2018
  43. HYDROXYZINE [Concomitant]
     Active Substance: HYDROXYZINE HYDROCHLORIDE
  44. METFORMIN [Concomitant]
     Active Substance: METFORMIN HYDROCHLORIDE
     Dosage: UNK
     Dates: start: 2008, end: 2013
  45. AMITRIPTYLINE HCL [Concomitant]
     Active Substance: AMITRIPTYLINE
  46. LORAZEPAM. [Concomitant]
     Active Substance: LORAZEPAM
  47. JANUVIA [Concomitant]
     Active Substance: SITAGLIPTIN PHOSPHATE
  48. LOSARTAN. [Concomitant]
     Active Substance: LOSARTAN
     Dosage: UNK
     Dates: start: 2014, end: 2018
  49. BENZONATATE. [Concomitant]
     Active Substance: BENZONATATE
     Indication: COUGH
     Dosage: UNK
     Dates: start: 2018
  50. NEXIUM [Suspect]
     Active Substance: ESOMEPRAZOLE MAGNESIUM
     Indication: PRODUCT USED FOR UNKNOWN INDICATION
     Dosage: UNK
     Route: 048
  51. PRILOSEC [Suspect]
     Active Substance: OMEPRAZOLE MAGNESIUM
     Indication: PRODUCT USED FOR UNKNOWN INDICATION
     Dosage: UNK
     Route: 048
  52. ACETAMINOPHEN AND CODEINE [Concomitant]
     Active Substance: ACETAMINOPHEN\CODEINE PHOSPHATE
  53. CYCLOBENZAPRINE. [Concomitant]
     Active Substance: CYCLOBENZAPRINE
  54. LEVOFLOXACIN. [Concomitant]
     Active Substance: LEVOFLOXACIN
     Dosage: UNK
     Dates: start: 2018

REACTIONS (3)
  - Chronic kidney disease [Unknown]
  - Acute kidney injury [Unknown]
  - Renal failure [Unknown]
